FAERS Safety Report 9650844 (Version 4)
Quarter: 2020Q1

REPORT INFORMATION
  Report Type: Report from Study
  Country: DE (occurrence: DE)
  Receive Date: 20131029
  Receipt Date: 20200110
  Transmission Date: 20200409
  Serious: Yes (Other)
  Sender: FDA-Public Use
  Company Number: DE-IPSEN BIOPHARMACEUTICALS, INC.-2010-0485

PATIENT
  Age: 8 Year
  Sex: Male
  Weight: 28.5 kg

DRUGS (6)
  1. INCRELEX [Suspect]
     Active Substance: MECASERMIN
     Indication: PRIMARY INSULIN LIKE GROWTH FACTOR-1 DEFICIENCY
     Dosage: 0.04 MG/KG = 40 UG/KG
     Route: 058
     Dates: start: 20081023, end: 20081216
  2. INCRELEX [Suspect]
     Active Substance: MECASERMIN
     Dosage: 0.06 MG/KG = 60 UG/KG
     Route: 058
     Dates: start: 20081217, end: 20090316
  3. INCRELEX [Suspect]
     Active Substance: MECASERMIN
     Dosage: 0.07 MG/KG = 70UG/KG
     Route: 058
     Dates: start: 20090317, end: 20090323
  4. INCRELEX [Suspect]
     Active Substance: MECASERMIN
     Dosage: 0.1 MG/KG = 100 UG/KG
     Route: 058
     Dates: start: 20090609, end: 20091019
  5. INCRELEX [Suspect]
     Active Substance: MECASERMIN
     Dosage: 0.08 MG/KG = 80 UG/KG
     Route: 058
     Dates: start: 20090324, end: 20090608
  6. INCRELEX [Suspect]
     Active Substance: MECASERMIN
     Dosage: 0.12 MG/KG = 120 UG/KG
     Route: 058
     Dates: start: 20091020, end: 20120918

REACTIONS (1)
  - Thyroid mass [Not Recovered/Not Resolved]

NARRATIVE: CASE EVENT DATE: 20091105
